FAERS Safety Report 5990047-6 (Version None)
Quarter: 2008Q4

REPORT INFORMATION
  Report Type: 
  Country: None (occurrence: None)
  Receive Date: 20081209
  Receipt Date: 20081204
  Transmission Date: 20090506
  Serious: Yes (Death, Hospitalization)
  Sender: FDA-Public Use
  Company Number: 2008SP022329

PATIENT
  Age: 58 Year
  Sex: Male
  Weight: 76.1 kg

DRUGS (10)
  1. TEMOZOLOMIDE [Suspect]
     Indication: GLIOBLASTOMA MULTIFORME
     Dosage: 75 MG/M2; QD; PO;  100 MG/M2; QD; PO
     Route: 048
     Dates: start: 20080910, end: 20080930
  2. TEMOZOLOMIDE [Suspect]
     Indication: GLIOBLASTOMA MULTIFORME
     Dosage: 75 MG/M2; QD; PO;  100 MG/M2; QD; PO
     Route: 048
     Dates: start: 20080423
  3. ASPIRIN [Concomitant]
  4. ZOCOR [Concomitant]
  5. FLONASE [Concomitant]
  6. METROGEL [Concomitant]
  7. CIALIS [Concomitant]
  8. AMBIEN [Concomitant]
  9. CELEXA [Concomitant]
  10. FISH OIL [Concomitant]

REACTIONS (20)
  - BRONCHIOLITIS [None]
  - DECREASED APPETITE [None]
  - DELIRIUM [None]
  - DYSPHASIA [None]
  - ENCEPHALITIS POST VARICELLA [None]
  - GASTROOESOPHAGEAL REFLUX DISEASE [None]
  - HYPOPHAGIA [None]
  - LYMPHOPENIA [None]
  - MENTAL STATUS CHANGES [None]
  - MUCOSAL INFLAMMATION [None]
  - NAUSEA [None]
  - OROPHARYNGEAL PAIN [None]
  - PHARYNGITIS [None]
  - PNEUMONIA ASPIRATION [None]
  - PNEUMONIA BACTERIAL [None]
  - RASH [None]
  - RESPIRATORY DISTRESS [None]
  - RESPIRATORY FAILURE [None]
  - VARICELLA [None]
  - VOMITING [None]
